FAERS Safety Report 22046329 (Version 2)
Quarter: 2023Q1

REPORT INFORMATION
  Report Type: Spontaneous
  Country: EE (occurrence: EE)
  Receive Date: 20230228
  Receipt Date: 20230315
  Transmission Date: 20230417
  Serious: Yes (Other)
  Sender: FDA-Public Use
  Company Number: EE-009507513-2302EST008381

PATIENT
  Age: 78 Year
  Sex: Female

DRUGS (5)
  1. KEYTRUDA [Suspect]
     Active Substance: PEMBROLIZUMAB
     Indication: Triple negative breast cancer
     Dosage: 200 MG EVERY 3 WEEKS
     Dates: start: 20221122, end: 20230306
  2. PACLITAXEL [Suspect]
     Active Substance: PACLITAXEL
     Indication: Triple negative breast cancer
     Dosage: 80MG/M2 (1 ? 12 W)
     Dates: start: 20221122, end: 20230206
  3. CARBOPLATIN [Suspect]
     Active Substance: CARBOPLATIN
     Indication: Triple negative breast cancer
     Dosage: AUC=5 (3W X 4)
     Dates: start: 20221122, end: 20230123
  4. EPIRUBICIN [Suspect]
     Active Substance: EPIRUBICIN
     Dosage: 75MG/M2
     Dates: start: 20230213, end: 20230306
  5. CYCLOPHOSPHAMIDE [Suspect]
     Active Substance: CYCLOPHOSPHAMIDE
     Indication: Triple negative breast cancer
     Dosage: 600MG/M2
     Dates: start: 20230213, end: 20230306

REACTIONS (3)
  - Febrile neutropenia [Unknown]
  - Pulmonary embolism [Unknown]
  - Adverse event [Unknown]

NARRATIVE: CASE EVENT DATE: 20230101
